FAERS Safety Report 5694196-1 (Version None)
Quarter: 2008Q2

REPORT INFORMATION
  Report Type: 
  Country: None (occurrence: None)
  Receive Date: 20080402
  Receipt Date: 20080321
  Transmission Date: 20081010
  Serious: Yes (Death, Hospitalization, Other)
  Sender: FDA-Public Use
  Company Number: 2007-00747

PATIENT
  Age: 63 Year
  Sex: Male

DRUGS (29)
  1. VELCADE [Suspect]
     Indication: MULTIPLE MYELOMA
     Dosage: 2.00 MG; 1.50 MG
     Dates: start: 20070220, end: 20070302
  2. VELCADE [Suspect]
     Indication: MULTIPLE MYELOMA
     Dosage: 2.00 MG; 1.50 MG
     Dates: start: 20070417, end: 20070522
  3. DEXAMETHASONE [Concomitant]
  4. MUCOSTA (REBAMIPIDE) [Concomitant]
  5. AMPHOTERICIN B [Concomitant]
  6. RABEPRAZOLE SODIUM [Concomitant]
  7. ZOLPIDEM TARTRATE [Concomitant]
  8. SULFAMETHOXAZOLE AND TRIMETHOPRIM [Concomitant]
  9. ITRACONAZOLE [Concomitant]
  10. GRAN [Concomitant]
  11. ALLOPURINOL [Concomitant]
  12. SODIUM BICARBONATE [Concomitant]
  13. TORSEMIDE [Concomitant]
  14. RED BLOOD CELLS [Concomitant]
  15. PLATELETS [Concomitant]
  16. GAMMAGARD [Concomitant]
  17. MORPHINE [Concomitant]
  18. MEXITIL [Concomitant]
  19. VANCOMYCIN [Concomitant]
  20. ACYCLOVIR [Concomitant]
  21. PROMAC /JPN/ (POLAPREZINC) [Concomitant]
  22. ALBUMIN (HUMAN) [Concomitant]
  23. GASMOTIN (MOSAPRIDE CITRATE) [Concomitant]
  24. SUCRALFATE [Concomitant]
  25. URSO 250 [Concomitant]
  26. ZOMETA [Concomitant]
  27. LANSOPRAZOLE [Concomitant]
  28. LOPERAMIDE HCL [Concomitant]
  29. PRODIF [Concomitant]

REACTIONS (10)
  - BLOOD ALKALINE PHOSPHATASE INCREASED [None]
  - CARDIAC FAILURE [None]
  - DIARRHOEA [None]
  - DISSEMINATED INTRAVASCULAR COAGULATION [None]
  - FUNGAL INFECTION [None]
  - GENERAL PHYSICAL HEALTH DETERIORATION [None]
  - HYPOALBUMINAEMIA [None]
  - PLEURAL EFFUSION [None]
  - PNEUMONIA [None]
  - STOMATITIS [None]
